FAERS Safety Report 23616232 (Version 1)
Quarter: 2024Q1

REPORT INFORMATION
  Report Type: Spontaneous
  Country: US (occurrence: None)
  Receive Date: 20240309
  Receipt Date: 20240309
  Transmission Date: 20240410
  Serious: Yes (Hospitalization)
  Sender: FDA-Public Use
  Company Number: None

PATIENT
  Age: 42 Year
  Sex: Male
  Weight: 40.4 kg

DRUGS (1)
  1. XELODA [Suspect]
     Active Substance: CAPECITABINE
     Indication: Product used for unknown indication
     Dates: end: 20240226

REACTIONS (10)
  - Asthenia [None]
  - Diarrhoea [None]
  - Nausea [None]
  - Heart rate increased [None]
  - Blood sodium decreased [None]
  - Intestinal dilatation [None]
  - Enterocolitis [None]
  - Intestinal obstruction [None]
  - Generalised oedema [None]
  - Malnutrition [None]

NARRATIVE: CASE EVENT DATE: 20240307
